FAERS Safety Report 9017679 (Version 1)
Quarter: 2013Q1

REPORT INFORMATION
  Report Type: Spontaneous
  Country: IN (occurrence: IN)
  Receive Date: 20130118
  Receipt Date: 20130118
  Transmission Date: 20140127
  Serious: Yes (Other)
  Sender: FDA-Public Use
  Company Number: IN-RANBAXY-2006US-04923

PATIENT
  Age: 21 Year
  Sex: Male

DRUGS (3)
  1. RISPERIDONE [Suspect]
     Indication: PSYCHOTIC DISORDER
     Dosage: 2 MG/DAY
     Route: 048
  2. RISPERIDONE [Suspect]
     Indication: PSYCHOTIC DISORDER
     Dosage: 4 MG/DAY
     Route: 048
  3. OXCARBAZEPINE [Concomitant]
     Indication: COMPLEX PARTIAL SEIZURES
     Dosage: 900 MG/DAY
     Route: 065

REACTIONS (1)
  - Erythema multiforme [Recovered/Resolved]
